FAERS Safety Report 15698949 (Version 1)
Quarter: 2018Q4

REPORT INFORMATION
  Report Type: Spontaneous
  Country: US (occurrence: US)
  Receive Date: 20181207
  Receipt Date: 20181207
  Transmission Date: 20190205
  Serious: No
  Sender: FDA-Public Use
  Company Number: US-PFIZER INC-2018500695

PATIENT
  Age: 33 Year
  Sex: Female

DRUGS (1)
  1. GENOTROPIN MQ [Suspect]
     Active Substance: SOMATROPIN
     Dosage: 0.4 MG, DAILY
     Dates: start: 20180819

REACTIONS (5)
  - Blood bilirubin decreased [Unknown]
  - Blood cholesterol increased [Unknown]
  - Blood thyroid stimulating hormone decreased [Unknown]
  - Blood creatinine increased [Unknown]
  - Low density lipoprotein increased [Unknown]

NARRATIVE: CASE EVENT DATE: 20180925
